FAERS Safety Report 7207858-1 (Version None)
Quarter: 2011Q1

REPORT INFORMATION
  Report Type: 
  Country: None (occurrence: None)
  Receive Date: 20110104
  Receipt Date: 20101223
  Transmission Date: 20110831
  Serious: Yes (Other)
  Sender: FDA-Public Use
  Company Number: US-RANBAXY-2010US-39014

PATIENT
  Age: 76 Year
  Sex: Female

DRUGS (3)
  1. FLUCONAZOLE [Suspect]
     Dosage: 1000 MG, UNK
     Route: 048
  2. FLUCONAZOLE [Suspect]
     Indication: COCCIDIOIDOMYCOSIS
     Dosage: 1200 MG, DAILY
     Route: 048
  3. FLUCONAZOLE [Suspect]
     Dosage: 400 MG DAILY
     Route: 048

REACTIONS (3)
  - CYSTOID MACULAR OEDEMA [None]
  - RETINAL TOXICITY [None]
  - TOXICITY TO VARIOUS AGENTS [None]
